FAERS Safety Report 7302844-5 (Version None)
Quarter: 2011Q1

REPORT INFORMATION
  Report Type: 
  Country: None (occurrence: None)
  Receive Date: 20110218
  Receipt Date: 20110131
  Transmission Date: 20110831
  Serious: Yes (Other)
  Sender: FDA-Public Use
  Company Number: PHFR2011GB01041

PATIENT
  Age: 63 Year
  Sex: Male

DRUGS (6)
  1. CORTICOSTEROID NOS [Suspect]
     Dosage: 1 DF, QD
  2. CICLOSPORIN [Concomitant]
  3. COTRIM [Concomitant]
  4. AZATHIOPRINE [Suspect]
     Indication: RENAL TRANSPLANT
     Dosage: 1 DF, QD
  5. TACROLIMUS [Suspect]
     Indication: RENAL TRANSPLANT
     Dosage: 0.1 MG/KG, QD
  6. BASILIXIMAB [Suspect]
     Indication: RENAL TRANSPLANT
     Dosage: 1 DF, QD

REACTIONS (4)
  - SERUM FERRITIN INCREASED [None]
  - ANAEMIA [None]
  - HAEMOGLOBIN DECREASED [None]
  - APLASIA PURE RED CELL [None]
